FAERS Safety Report 9527425 (Version 1)
Quarter: 2013Q3

REPORT INFORMATION
  Report Type: Spontaneous
  Country: US (occurrence: US)
  Receive Date: 20130917
  Receipt Date: 20130917
  Transmission Date: 20140515
  Serious: No
  Sender: FDA-Public Use
  Company Number: US-009507513-1309USA004319

PATIENT
  Sex: Male

DRUGS (4)
  1. JANUMET [Suspect]
     Indication: DIABETES MELLITUS
     Dosage: 50/500 ONCE PER DAY
     Route: 048
     Dates: start: 2012
  2. NAMENDA [Concomitant]
  3. MELOX (MELOXICAM) [Concomitant]
  4. SIMVASTATIN TABLETS, USP [Concomitant]
     Dosage: UNK

REACTIONS (2)
  - Dementia [Unknown]
  - Wrong technique in drug usage process [Unknown]
